FAERS Safety Report 7801424-2 (Version None)
Quarter: 2011Q4

REPORT INFORMATION
  Report Type: 
  Country: None (occurrence: None)
  Receive Date: 20111005
  Receipt Date: 20110921
  Transmission Date: 20120403
  Serious: Yes (Hospitalization)
  Sender: FDA-Public Use
  Company Number: 1000024313

PATIENT
  Sex: Male

DRUGS (6)
  1. METHADONE HCL [Suspect]
     Dosage: 180 MG
  2. ESCITALOPRAM OXALATE [Suspect]
     Dosage: 20 MG (20 MG, 1 IN 1 D), ORAL
     Route: 048
     Dates: end: 20000620
  3. QUETIAPINE FUMARATE [Suspect]
     Dosage: 50 MG, ORAL
     Route: 048
     Dates: end: 20090620
  4. ESOMEPRAZOLE MAGNESIUM TRIHYDRATE (ESOMEPRAZOLE MAGNESIUM) (ESOMEPRAZO [Concomitant]
  5. VITAMINORUM B.P.C. (KAPSOVIT) (KAPSOVIT) [Concomitant]
  6. CREON (PANCREATIN) (PANCREATIN) [Concomitant]

REACTIONS (3)
  - TORSADE DE POINTES [None]
  - HYPOKALAEMIA [None]
  - HYPOMAGNESAEMIA [None]
